FAERS Safety Report 24214289 (Version 8)
Quarter: 2024Q4

REPORT INFORMATION
  Report Type: Report from Study
  Country: CA (occurrence: CA)
  Receive Date: 20240815
  Receipt Date: 20241122
  Transmission Date: 20250114
  Serious: Yes (Other)
  Sender: JOHNSON AND JOHNSON
  Company Number: CA-JNJFOC-20240832094

PATIENT
  Age: 11 Year
  Sex: Female

DRUGS (3)
  1. REMICADE [Suspect]
     Active Substance: INFLIXIMAB
     Indication: Colitis ulcerative
     Dosage: EXPIRY: FEB-2027
     Route: 041
     Dates: start: 20240627
  2. REMICADE [Suspect]
     Active Substance: INFLIXIMAB
     Dosage: INDUCTION AT 400MG (THEN MAINTENANCE 400MG EVERY 6 WEEKS)
     Route: 041
  3. REMICADE [Suspect]
     Active Substance: INFLIXIMAB
     Route: 041

REACTIONS (7)
  - Haematochezia [Not Recovered/Not Resolved]
  - Abdominal pain [Recovering/Resolving]
  - Inflammation [Unknown]
  - Off label use [Unknown]
  - Nasopharyngitis [Recovering/Resolving]
  - Multiple allergies [Recovering/Resolving]
  - Drug level decreased [Unknown]

NARRATIVE: CASE EVENT DATE: 20240806
